FAERS Safety Report 8955073 (Version 3)
Quarter: 2013Q1

REPORT INFORMATION
  Report Type: Spontaneous
  Country: US (occurrence: US)
  Receive Date: 20121207
  Receipt Date: 20130114
  Transmission Date: 20140127
  Serious: No
  Sender: FDA-Public Use
  Company Number: US-009507513-1212USA000453

PATIENT
  Sex: Male

DRUGS (3)
  1. PEGINTRON [Suspect]
     Indication: HEPATITIS C
     Dosage: UNK
     Route: 058
     Dates: start: 20121113, end: 20121221
  2. RIBAVIRIN [Suspect]
     Indication: HEPATITIS C
     Dosage: UNK
     Route: 048
     Dates: start: 20121113, end: 20121221
  3. TELAPREVIR [Suspect]
     Indication: HEPATITIS C
     Dosage: UNK
     Dates: start: 20121113, end: 20121221

REACTIONS (13)
  - Memory impairment [Unknown]
  - Decreased appetite [Unknown]
  - Vomiting [Unknown]
  - Nausea [Unknown]
  - Dysgeusia [Unknown]
  - Visual acuity reduced [Unknown]
  - Visual impairment [Unknown]
  - Adverse event [Unknown]
  - Asocial behaviour [Unknown]
  - Dysstasia [Unknown]
  - Mental disorder [Unknown]
  - Influenza [Unknown]
  - Insomnia [Unknown]
